FAERS Safety Report 12731883 (Version 1)
Quarter: 2016Q3

REPORT INFORMATION
  Report Type: Spontaneous
  Country: US (occurrence: US)
  Receive Date: 20160912
  Receipt Date: 20160912
  Transmission Date: 20161109
  Serious: Yes (Life-Threatening, Other)
  Sender: FDA-Public Use
  Company Number: None

PATIENT
  Age: 48 Year
  Sex: Female
  Weight: 58.5 kg

DRUGS (5)
  1. ESCITALOPRAM [Suspect]
     Active Substance: ESCITALOPRAM OXALATE
     Indication: DRUG THERAPY
     Route: 048
     Dates: start: 20160907, end: 20160908
  2. ATENOLOL. [Concomitant]
     Active Substance: ATENOLOL
  3. ESTRADIOL. [Concomitant]
     Active Substance: ESTRADIOL
  4. VITAMIN C [Concomitant]
     Active Substance: ASCORBIC ACID
  5. LEXAPRO [Concomitant]
     Active Substance: ESCITALOPRAM OXALATE

REACTIONS (2)
  - Anaphylactic reaction [None]
  - Reaction to drug excipients [None]

NARRATIVE: CASE EVENT DATE: 20160908
